FAERS Safety Report 11562460 (Version 1)
Quarter: 2015Q3

REPORT INFORMATION
  Report Type: Other
  Country: JP (occurrence: JP)
  Receive Date: 20150928
  Receipt Date: 20150928
  Transmission Date: 20151125
  Serious: Yes (Hospitalization)
  Sender: FDA-Public Use
  Company Number: JP-ACTELION-A-CH2015-124245

PATIENT
  Age: 68 Year
  Sex: Female

DRUGS (7)
  1. KETAMINE [Concomitant]
     Active Substance: KETAMINE
  2. FENTANYL. [Concomitant]
     Active Substance: FENTANYL
  3. MIDAZOLAM [Concomitant]
     Active Substance: MIDAZOLAM\MIDAZOLAM HYDROCHLORIDE
  4. OXYGEN. [Concomitant]
     Active Substance: OXYGEN
  5. TRACLEER [Suspect]
     Active Substance: BOSENTAN
     Indication: PULMONARY ARTERIAL HYPERTENSION
     Route: 048
  6. EPOPROSTENOL ACT [Concomitant]
     Active Substance: EPOPROSTENOL
     Indication: PULMONARY ARTERIAL HYPERTENSION
     Route: 042
  7. SILDENAFIL. [Concomitant]
     Active Substance: SILDENAFIL

REACTIONS (2)
  - Pulmonary congestion [Unknown]
  - Inferior vena cava dilatation [Unknown]
